FAERS Safety Report 15682712 (Version 2)
Quarter: 2018Q4

REPORT INFORMATION
  Report Type: Spontaneous
  Country: US (occurrence: US)
  Receive Date: 20181203
  Receipt Date: 20181205
  Transmission Date: 20190205
  Serious: Yes (Hospitalization, Other)
  Sender: FDA-Public Use
  Company Number: US-009507513-1811USA012282

PATIENT
  Age: 77 Year
  Sex: Male

DRUGS (4)
  1. HUMALOG [Concomitant]
     Active Substance: INSULIN LISPRO
     Indication: INFLAMMATION
     Dosage: DAILY AS NEEDED
     Route: 061
  2. LOSARTAN. [Concomitant]
     Active Substance: LOSARTAN
  3. ELOCON [Suspect]
     Active Substance: MOMETASONE FUROATE
     Indication: INFLAMMATION
     Dosage: DAILY AS NEEDED
     Route: 061
     Dates: start: 2000
  4. NOVOLIN [Concomitant]
     Active Substance: INSULIN HUMAN

REACTIONS (4)
  - Inclusion body myositis [Not Recovered/Not Resolved]
  - Renal stone removal [Not Recovered/Not Resolved]
  - Cataract operation [Not Recovered/Not Resolved]
  - Knee operation [Not Recovered/Not Resolved]

NARRATIVE: CASE EVENT DATE: 2008
